FAERS Safety Report 5621916-4 (Version None)
Quarter: 2008Q1

REPORT INFORMATION
  Report Type: 
  Country: None (occurrence: None)
  Receive Date: 20080114
  Receipt Date: 20070621
  Transmission Date: 20080703
  Serious: Yes (Hospitalization)
  Sender: FDA-Public Use
  Company Number: A03200704164

PATIENT
  Sex: Female

DRUGS (2)
  1. PLAVIX [Suspect]
     Indication: INTERMITTENT CLAUDICATION
     Dosage: 75 MG QD -ORAL
     Route: 048
     Dates: start: 20070601, end: 20070620
  2. ACETYLSALICYLIC ACID SRT [Concomitant]

REACTIONS (4)
  - BLOOD PRESSURE INCREASED [None]
  - CONFUSIONAL STATE [None]
  - HEADACHE [None]
  - VERTIGO [None]
